FAERS Safety Report 23161227 (Version 2)
Quarter: 2023Q4

REPORT INFORMATION
  Report Type: Spontaneous
  Country: US (occurrence: US)
  Receive Date: 20231108
  Receipt Date: 20231117
  Transmission Date: 20240109
  Serious: Yes (Other)
  Sender: FDA-Public Use
  Company Number: US-BIOMARINAP-US-2023-153776

PATIENT

DRUGS (1)
  1. KUVAN [Suspect]
     Active Substance: SAPROPTERIN DIHYDROCHLORIDE
     Indication: Foetal exposure during pregnancy
     Dosage: 1300 MILLIGRAM, QD
     Route: 064
     Dates: start: 20200301

REACTIONS (3)
  - Foetal growth restriction [Unknown]
  - Microcephaly [Unknown]
  - Breech presentation [Unknown]

NARRATIVE: CASE EVENT DATE: 20230925
